FAERS Safety Report 16777830 (Version 1)
Quarter: 2019Q3

REPORT INFORMATION
  Report Type: Spontaneous
  Country: DE (occurrence: DE)
  Receive Date: 20190905
  Receipt Date: 20190905
  Transmission Date: 20191005
  Serious: Yes (Other)
  Sender: FDA-Public Use
  Company Number: PHHY2019DE178083

PATIENT
  Age: 50 Year
  Sex: Female

DRUGS (6)
  1. ACETYLSALICYLIC ACID [Concomitant]
     Active Substance: ASPIRIN
     Indication: OSTEONECROSIS
     Dosage: 100 MG, QD
     Route: 065
  2. ACETYLSALICYLIC ACID [Concomitant]
     Active Substance: ASPIRIN
     Indication: PROPHYLAXIS
  3. ACLASTA [Suspect]
     Active Substance: ZOLEDRONIC ACID
     Indication: METASTASES TO BONE
  4. ACLASTA [Suspect]
     Active Substance: ZOLEDRONIC ACID
     Indication: OSTEOPOROSIS
     Dosage: UNK
     Route: 041
  5. TAMOXIFEN [Concomitant]
     Active Substance: TAMOXIFEN
     Indication: BREAST CANCER
     Dosage: UNK
     Route: 065
  6. EUTHYROX [Concomitant]
     Active Substance: LEVOTHYROXINE SODIUM
     Indication: HYPOTHYROIDISM
     Dosage: 100 MG, QD
     Route: 065

REACTIONS (12)
  - Scleritis [Recovering/Resolving]
  - Swelling of eyelid [Recovering/Resolving]
  - Visual acuity reduced [Recovering/Resolving]
  - Conjunctival hyperaemia [Recovering/Resolving]
  - Uveitis [Recovering/Resolving]
  - Lymphocyte count decreased [Recovering/Resolving]
  - Alpha tumour necrosis factor increased [Recovering/Resolving]
  - Influenza like illness [Recovering/Resolving]
  - Corneal deposits [Recovering/Resolving]
  - Eye oedema [Recovering/Resolving]
  - Iris adhesions [Recovering/Resolving]
  - Hypopyon [Recovering/Resolving]
